FAERS Safety Report 25143671 (Version 1)
Quarter: 2025Q2

REPORT INFORMATION
  Report Type: Spontaneous
  Country: CN (occurrence: CN)
  Receive Date: 20250401
  Receipt Date: 20250401
  Transmission Date: 20250716
  Serious: Yes (Hospitalization, Other)
  Sender: CHEPLAPHARM
  Company Number: CN-CHEPLA-2025004068

PATIENT
  Age: 52 Year
  Sex: Female

DRUGS (22)
  1. OLANZAPINE [Suspect]
     Active Substance: OLANZAPINE
     Indication: Schizophrenia
     Dosage: RECOMMENDED MAX DOSE: 20 MG/DAY?DAILY DOSE: 40 MILLIGRAM
  2. SULPIRIDE [Suspect]
     Active Substance: SULPIRIDE
     Indication: Schizophrenia
  3. SULPIRIDE [Suspect]
     Active Substance: SULPIRIDE
     Indication: Schizophrenia
     Dosage: RECOMMENDED MAX DOSE: 600 MG/DAY?DAILY DOSE: 1500 MILLIGRAM
  4. ZIPRASIDONE [Suspect]
     Active Substance: ZIPRASIDONE
     Dosage: RECOMMENDED MAXIMUM DOSE: 160 MG/DAY?DAILY DOSE: 280 MILLI-INTERNATIONAL UNIT
  5. RISPERIDONE [Suspect]
     Active Substance: RISPERIDONE
     Dosage: RECOMMENDED MAX DOSE: 16 MG/DAY?DAILY DOSE: 18 MILLIGRAM
  6. RISPERIDONE [Suspect]
     Active Substance: RISPERIDONE
     Dosage: DAILY DOSE: 6 MILLIGRAM
  7. ARIPIPRAZOLE [Suspect]
     Active Substance: ARIPIPRAZOLE
     Dosage: RECOMMENDED MAX DOSE: 30 MG/DAY?DAILY DOSE: 60 MILLIGRAM
  8. CLOZAPINE [Suspect]
     Active Substance: CLOZAPINE
     Dosage: RECOMMENDED MAX DOSE: 600 MG/DAY?DAILY DOSE: 450 MILLIGRAM
  9. CLOZAPINE [Suspect]
     Active Substance: CLOZAPINE
     Dosage: DAILY DOSE: 300 MILLIGRAM
  10. CLOZAPINE [Suspect]
     Active Substance: CLOZAPINE
     Dosage: DAILY DOSE: 275 MILLIGRAM
  11. TRIHEXYPHENIDYL [Suspect]
     Active Substance: TRIHEXYPHENIDYL
     Dosage: RECOMMENDED MAX DOSE: 20 MG/DAY?DAILY DOSE: 12 MILLIGRAM
  12. TRIHEXYPHENIDYL [Suspect]
     Active Substance: TRIHEXYPHENIDYL
     Dosage: DAILY DOSE: 4 MILLIGRAM
  13. ORYZANOL [Suspect]
     Active Substance: GAMMA ORYZANOL
     Dosage: RECOMMENDED MAX DOSE: 90 MG/DAY?DAILY DOSE: 40 MILLIGRAM
  14. INOSINE [Suspect]
     Active Substance: INOSINE
     Dosage: RECOMMENDED MAX DOSE: 1800 MG/DAY?DAILY DOSE: 600 MILLIGRAM
  15. ADENOSINE TRIPHOSPHATE DISODIUM [Suspect]
     Active Substance: ADENOSINE TRIPHOSPHATE DISODIUM
     Dosage: RECOMMENDED MAX DOSE: 120 MG/DAY?DAILY DOSE: 120 MILLIGRAM
  16. PROPRANOLOL [Suspect]
     Active Substance: PROPRANOLOL HYDROCHLORIDE
     Dosage: RECOMMENDED MAXIMUM DOSE: 200 MG/DAY?DAILY DOSE: 120 MILLIGRAM
  17. PROPRANOLOL [Suspect]
     Active Substance: PROPRANOLOL HYDROCHLORIDE
     Dosage: DAILY DOSE: 20 MILLIGRAM
  18. Jiang-zhi-ning [Concomitant]
     Indication: Hyperlipidaemia
     Dosage: RECOMMENDED MAXIMUM DOSE: 6000MG/DAY?DAILY DOSE: 6000 MILLIGRAM
  19. Compound Dan- Shen [Concomitant]
     Indication: Coronary artery disease
     Dosage: RECOMMENDED MAXIMUM DOSE: 2800 MG/DAY?DAILY DOSE: 2880 MILLIGRAM
  20. Yi-Xin-Tong [Concomitant]
     Indication: Coronary artery disease
     Dosage: RECOMMENDED MAXIMUM DOSE: 2250 MG/DAY?DAILY DOSE: 3000 MILLIGRAM
  21. Yi-Xin-Tong [Concomitant]
     Indication: Hyperlipidaemia
     Dosage: RECOMMENDED MAXIMUM DOSE: 2250 MG/DAY?DAILY DOSE: 3000 MILLIGRAM
  22. Xing-Nao-An-Shen [Concomitant]
     Dosage: RECOMMENDED MAXIMUM DOSE: 4080 MG/DAY?DAILY DOSE: 2040 MILLIGRAM

REACTIONS (5)
  - Psychotic symptom [Unknown]
  - Salivary hypersecretion [Unknown]
  - Toxicity to various agents [Unknown]
  - Constipation [Unknown]
  - Intentional product use issue [Unknown]

NARRATIVE: CASE EVENT DATE: 20220101
